FAERS Safety Report 13961561 (Version 1)
Quarter: 2017Q3

REPORT INFORMATION
  Report Type: Spontaneous
  Country: IN (occurrence: IN)
  Receive Date: 20170912
  Receipt Date: 20170912
  Transmission Date: 20171128
  Serious: Yes (Death)
  Sender: FDA-Public Use
  Company Number: IN-EPIC PHARMA LLC-2017EPC01928

PATIENT
  Age: 43 Year
  Sex: Male

DRUGS (1)
  1. PHENYTOIN. [Suspect]
     Active Substance: PHENYTOIN
     Indication: EPILEPSY
     Dosage: 100 MG, 3X/DAY
     Route: 065

REACTIONS (5)
  - Loss of consciousness [Fatal]
  - Cardiac arrest [Fatal]
  - Myocarditis [Fatal]
  - Respiratory distress [Fatal]
  - Stevens-Johnson syndrome [Fatal]
